FAERS Safety Report 21429252 (Version 1)
Quarter: 2022Q4

REPORT INFORMATION
  Report Type: Spontaneous
  Country: ES (occurrence: ES)
  Receive Date: 20221009
  Receipt Date: 20221009
  Transmission Date: 20230113
  Serious: Yes (Other)
  Sender: FDA-Public Use
  Company Number: None

PATIENT
  Age: 81 Year
  Sex: Female

DRUGS (6)
  1. AMBRISENTAN [Suspect]
     Active Substance: AMBRISENTAN
     Indication: Pulmonary hypertension
     Dosage: AMBRISENTAN (8261A)
     Route: 065
     Dates: start: 20141125, end: 20220712
  2. HIBOR [Concomitant]
     Indication: Pulmonary embolism
     Dosage: HIBOR 10,000 ANTI-XA IU/0.4 ML, 10 PRE-FILLED SYRINGES OF 0.4 ML
     Dates: start: 201903
  3. ALDACTONE [Concomitant]
     Active Substance: SPIRONOLACTONE
     Indication: Hypertension
     Dosage: 20 TABLETS
     Dates: start: 201509
  4. FUROSEMIDE [Concomitant]
     Active Substance: FUROSEMIDE
     Indication: Cardiac failure
     Dosage: FUROSEMIDE (1615A)
     Dates: start: 202103
  5. OMEPRAZOLE [Concomitant]
     Active Substance: OMEPRAZOLE
     Indication: Gastritis prophylaxis
     Dosage: OMEPRAZOLE (2141A)
     Dates: start: 201511
  6. ACETAMINOPHEN [Concomitant]
     Active Substance: ACETAMINOPHEN
     Indication: Pain
     Dosage: PARACETAMOL (12A)
     Dates: start: 201511

REACTIONS (2)
  - Hyperbilirubinaemia [Recovered/Resolved]
  - Hypertransaminasaemia [Recovered/Resolved]

NARRATIVE: CASE EVENT DATE: 20220607
